FAERS Safety Report 6678331-4 (Version None)
Quarter: 2010Q2

REPORT INFORMATION
  Report Type: 
  Country: None (occurrence: None)
  Receive Date: 20100413
  Receipt Date: 20100401
  Transmission Date: 20101027
  Serious: No
  Sender: FDA-Public Use
  Company Number: US-BIOGENIDEC-2010BI007742

PATIENT
  Age: 59 Year
  Sex: Female

DRUGS (2)
  1. TYSABRI [Suspect]
     Indication: MULTIPLE SCLEROSIS
     Route: 042
     Dates: start: 20080107, end: 20080717
  2. TYSABRI [Suspect]
     Route: 042
     Dates: start: 20090206, end: 20100324

REACTIONS (3)
  - DRUG INEFFECTIVE [None]
  - HERPES ZOSTER [None]
  - IMMUNE SYSTEM DISORDER [None]
